FAERS Safety Report 10161236 (Version 1)
Quarter: 2014Q2

REPORT INFORMATION
  Report Type: Spontaneous
  Country: JP (occurrence: JP)
  Receive Date: 20140508
  Receipt Date: 20140508
  Transmission Date: 20141212
  Serious: Yes (Other)
  Sender: FDA-Public Use
  Company Number: PHHY2014JP055985

PATIENT
  Age: 16 Year
  Sex: Male

DRUGS (6)
  1. METHYLPHENIDATE [Suspect]
  2. ATOMOXETINE [Suspect]
  3. RISPERIDONE [Suspect]
  4. ZOLPIDEM [Suspect]
  5. ZOPICLONE [Suspect]
  6. RAMELTEON [Concomitant]
     Dosage: 8 MG, QD

REACTIONS (3)
  - Sedation [Unknown]
  - Insomnia [Unknown]
  - Drug ineffective [Unknown]
